FAERS Safety Report 15010729 (Version 1)
Quarter: 2018Q2

REPORT INFORMATION
  Report Type: Spontaneous
  Country: US (occurrence: US)
  Receive Date: 20180614
  Receipt Date: 20180614
  Transmission Date: 20180711
  Serious: No
  Sender: FDA-Public Use
  Company Number: US-BAYER-2018-103306

PATIENT
  Age: 10 Year
  Sex: Male

DRUGS (2)
  1. COPPERTONE WATER BABIES SPF 50 [Suspect]
     Active Substance: AVOBENZONE\HOMOSALATE\OCTISALATE\OCTOCRYLENE\OXYBENZONE
     Indication: THERAPEUTIC SKIN CARE TOPICAL
     Dosage: UNK
     Route: 061
  2. CLARITIN [Suspect]
     Active Substance: LORATADINE
     Indication: RASH

REACTIONS (2)
  - Off label use [Unknown]
  - Application site rash [Unknown]
